FAERS Safety Report 7411640-X (Version None)
Quarter: 2011Q2

REPORT INFORMATION
  Report Type: 
  Country: None (occurrence: None)
  Receive Date: 20110413
  Receipt Date: 20101006
  Transmission Date: 20111010
  Serious: Yes (Other)
  Sender: FDA-Public Use
  Company Number: US-BRISTOL-MYERS SQUIBB COMPANY-15320880

PATIENT
  Age: 80 Year
  Sex: Male

DRUGS (2)
  1. BENADRYL [Concomitant]
     Indication: PREMEDICATION
  2. ERBITUX [Suspect]
     Dosage: 1ST INFUSION A MONTH AGO

REACTIONS (1)
  - INFUSION RELATED REACTION [None]
